FAERS Safety Report 9465140 (Version 1)
Quarter: 2013Q3

REPORT INFORMATION
  Report Type: Spontaneous
  Country: SI (occurrence: SI)
  Receive Date: 20130819
  Receipt Date: 20130819
  Transmission Date: 20140515
  Serious: Yes (Other)
  Sender: FDA-Public Use
  Company Number: SI-BRACCO-000025

PATIENT
  Sex: Female

DRUGS (4)
  1. ASCORBIC ACID [Concomitant]
  2. PLACEBO [Concomitant]
  3. SALINE [Concomitant]
     Route: 042
  4. IOPAMIRO [Suspect]
     Indication: ARTERIOGRAM CORONARY
     Route: 042

REACTIONS (1)
  - Nephropathy toxic [Unknown]
